FAERS Safety Report 5329351-3 (Version None)
Quarter: 2007Q2

REPORT INFORMATION
  Report Type: 
  Country: None (occurrence: None)
  Receive Date: 20070518
  Receipt Date: 20070511
  Transmission Date: 20071010
  Serious: Yes (Other)
  Sender: FDA-Public Use
  Company Number: CN-PFIZER INC-2007038550

PATIENT
  Age: 75 Year
  Sex: Male

DRUGS (1)
  1. CELEBREX [Suspect]
     Indication: PAIN
     Dosage: DAILY DOSE:800MG
     Route: 048
     Dates: start: 20070501, end: 20070501

REACTIONS (1)
  - ANURIA [None]
